FAERS Safety Report 4291055-6 (Version None)
Quarter: 2004Q1

REPORT INFORMATION
  Report Type: 
  Country: None (occurrence: None)
  Receive Date: 20040209
  Receipt Date: 20040129
  Transmission Date: 20041129
  Serious: Yes (Other)
  Sender: FDA-Public Use
  Company Number: 2004005987

PATIENT
  Age: 78 Year
  Sex: Female

DRUGS (1)
  1. VFEND [Suspect]
     Indication: BRONCHOPULMONARY ASPERGILLOSIS
     Dosage: 400 MG BID ORAL
     Route: 048
     Dates: start: 20040109

REACTIONS (2)
  - BLINDNESS [None]
  - MACULAR DEGENERATION [None]
